FAERS Safety Report 19176329 (Version 1)
Quarter: 2021Q2

REPORT INFORMATION
  Report Type: Spontaneous
  Country: GR (occurrence: GR)
  Receive Date: 20210423
  Receipt Date: 20210423
  Transmission Date: 20210717
  Serious: Yes (Hospitalization, Other)
  Sender: FDA-Public Use
  Company Number: GR-INSUD PHARMA-2104GR00452

PATIENT

DRUGS (1)
  1. LEVONORGESTREL. [Suspect]
     Active Substance: LEVONORGESTREL
     Indication: POST COITAL CONTRACEPTION
     Dosage: 1.5 MG, ONCE
     Route: 048

REACTIONS (6)
  - Pulmonary alveolar haemorrhage [Recovered/Resolved]
  - Cough [Recovered/Resolved]
  - Anaemia [Recovered/Resolved]
  - Leukocytosis [Recovered/Resolved]
  - Hypoxia [Recovered/Resolved]
  - Haemoptysis [Recovered/Resolved]
